FAERS Safety Report 6212415-X (Version None)
Quarter: 2009Q2

REPORT INFORMATION
  Report Type: 
  Country: None (occurrence: None)
  Receive Date: 20090601
  Receipt Date: 20090601
  Transmission Date: 20091009
  Serious: Yes (Death)
  Sender: FDA-Public Use
  Company Number: None

PATIENT
  Sex: Male

DRUGS (2)
  1. DIGOXIN [Suspect]
     Dosage: DOUBLE DAILY
  2. ISOSORBIDE MONONITRATE [Suspect]
     Dosage: DOUBLE DAILY

REACTIONS (2)
  - DEATH [None]
  - PRODUCT QUALITY ISSUE [None]
